FAERS Safety Report 23443780 (Version 6)
Quarter: 2024Q3

REPORT INFORMATION
  Report Type: Spontaneous
  Country: US (occurrence: US)
  Receive Date: 20240125
  Receipt Date: 20240823
  Transmission Date: 20241017
  Serious: Yes (Other)
  Sender: CALLIDITAS THERAPEUTICS
  Company Number: US-Calliditas-2024CAL00086

PATIENT
  Age: 50 Year
  Sex: Male

DRUGS (2)
  1. TARPEYO [Suspect]
     Active Substance: BUDESONIDE
     Indication: IgA nephropathy
     Dosage: 16 MG (4 MG CAPSULES) ONCE DAILY
     Route: 048
     Dates: start: 20231129
  2. FARXIGA [Concomitant]
     Active Substance: DAPAGLIFLOZIN PROPANEDIOL

REACTIONS (10)
  - Back pain [Not Recovered/Not Resolved]
  - Pollakiuria [Unknown]
  - Weight increased [Not Recovered/Not Resolved]
  - Dyspnoea [Unknown]
  - Dyspnoea [Unknown]
  - Leukocytosis [Unknown]
  - Diabetes mellitus [Unknown]
  - Fatigue [Not Recovered/Not Resolved]
  - Nocturia [Not Recovered/Not Resolved]
  - Thirst [Not Recovered/Not Resolved]

NARRATIVE: CASE EVENT DATE: 20240410
